FAERS Safety Report 5495872-6 (Version None)
Quarter: 2007Q4

REPORT INFORMATION
  Report Type: 
  Country: None (occurrence: None)
  Receive Date: 20071025
  Receipt Date: 20061117
  Transmission Date: 20080405
  Serious: No
  Sender: FDA-Public Use
  Company Number: A0626341A

PATIENT
  Sex: Female

DRUGS (2)
  1. ADVAIR DISKUS 100/50 [Suspect]
     Dosage: 100MCG TWICE PER DAY
     Route: 055
     Dates: start: 20061103
  2. ANTIBIOTIC [Concomitant]

REACTIONS (2)
  - BACK PAIN [None]
  - CHEST DISCOMFORT [None]
